FAERS Safety Report 4601419-6 (Version None)
Quarter: 2005Q1

REPORT INFORMATION
  Report Type: 
  Country: None (occurrence: None)
  Receive Date: 20050308
  Receipt Date: 20050204
  Transmission Date: 20050727
  Serious: Yes (Death)
  Sender: FDA-Public Use
  Company Number: CA-SANOFI-SYNTHELABO-F01200500206

PATIENT
  Sex: Male

DRUGS (8)
  1. BEVACIZUMAB OR PLACEBO [Suspect]
     Route: 042
     Dates: start: 20050119, end: 20050119
  2. MAXERAN [Concomitant]
     Dosage: UNK
     Route: 065
     Dates: start: 20050118
  3. LEUCOVORIN [Suspect]
     Route: 042
     Dates: start: 20050119, end: 20050120
  4. FLUOROURACIL [Suspect]
     Dosage: 650 MG IV BOLUS AND 9850 MG IV CONTINUOUS INFUSION, Q2W
     Route: 042
     Dates: start: 20050119, end: 20050120
  5. OXALIPLATIN [Suspect]
     Indication: COLORECTAL CANCER METASTATIC
     Route: 042
     Dates: start: 20050119, end: 20050119
  6. PREDNISOLONE [Concomitant]
     Dosage: UNK
     Route: 065
     Dates: start: 20041018
  7. NEXIUM [Concomitant]
     Dosage: UNK
     Route: 065
     Dates: start: 20041018
  8. M-ESLON [Concomitant]
     Dosage: UNK
     Route: 065
     Dates: start: 20040808

REACTIONS (2)
  - PNEUMONIA [None]
  - SEPSIS [None]
